FAERS Safety Report 13011197 (Version 3)
Quarter: 2017Q1

REPORT INFORMATION
  Report Type: Spontaneous
  Country: BR (occurrence: BR)
  Receive Date: 20161208
  Receipt Date: 20170208
  Transmission Date: 20170428
  Serious: Yes (Other)
  Sender: FDA-Public Use
  Company Number: BR-AMGEN-BRASP2015054196

PATIENT
  Age: 16 Year
  Sex: Female
  Weight: 53 kg

DRUGS (3)
  1. ENBREL [Suspect]
     Active Substance: ETANERCEPT
     Dosage: UNK
     Route: 065
     Dates: start: 2009, end: 2015
  2. ENBREL [Suspect]
     Active Substance: ETANERCEPT
     Indication: JUVENILE IDIOPATHIC ARTHRITIS
     Dosage: 50 MG, WEEKLY
     Route: 058
     Dates: start: 2003, end: 201403
  3. BUSCOPAN COMPOSTO [Concomitant]
     Active Substance: BUTYLSCOPOLAMINE BROMIDE\METAMIZOLE SODIUM
     Indication: ABDOMINAL PAIN
     Dosage: UNK, AS NEEDED

REACTIONS (7)
  - Product use issue [Unknown]
  - Gastrooesophageal reflux disease [Unknown]
  - Atrophy [Not Recovered/Not Resolved]
  - Cholelithiasis [Unknown]
  - Gallbladder disorder [Unknown]
  - Pancreatic disorder [Unknown]
  - Abdominal pain upper [Unknown]

NARRATIVE: CASE EVENT DATE: 201503
